FAERS Safety Report 9696077 (Version 3)
Quarter: 2013Q4

REPORT INFORMATION
  Report Type: Report from Study
  Country: JP (occurrence: JP)
  Receive Date: 20131119
  Receipt Date: 20131231
  Transmission Date: 20140711
  Serious: Yes (Life-Threatening, Hospitalization)
  Sender: FDA-Public Use
  Company Number: JP-GLAXOSMITHKLINE-B0766590A

PATIENT
  Age: 56 Year
  Sex: Female
  Weight: 35 kg

DRUGS (20)
  1. FLOLAN [Suspect]
     Route: 042
     Dates: start: 2008
  2. FLOLAN [Suspect]
     Route: 042
     Dates: start: 200812
  3. FLOLAN [Suspect]
     Route: 042
  4. FLOLAN [Suspect]
     Indication: PULMONARY ARTERIAL HYPERTENSION
     Route: 042
     Dates: end: 20110207
  5. FLOLAN [Suspect]
     Indication: PULMONARY ARTERIAL HYPERTENSION
     Route: 042
     Dates: start: 20110208, end: 20110314
  6. FLOLAN [Suspect]
     Indication: PULMONARY ARTERIAL HYPERTENSION
     Route: 042
     Dates: start: 20110315, end: 20110509
  7. VOLIBRIS [Suspect]
     Indication: PULMONARY ARTERIAL HYPERTENSION
     Dosage: 5MG PER DAY
     Route: 048
     Dates: start: 20110118, end: 20110508
  8. BAYASPIRIN [Concomitant]
     Route: 048
     Dates: end: 20110508
  9. METILDIGOXIN [Concomitant]
     Route: 048
     Dates: end: 20110508
  10. FUROSEMIDE [Concomitant]
     Route: 048
     Dates: end: 20110508
  11. ALDACTONE A [Concomitant]
     Route: 048
     Dates: end: 20110508
  12. KALGUT [Concomitant]
     Route: 048
     Dates: end: 20110508
  13. PIMOBENDAN [Concomitant]
     Route: 048
     Dates: end: 20110508
  14. ADCIRCA [Concomitant]
     Indication: PULMONARY ARTERIAL HYPERTENSION
     Route: 048
     Dates: start: 20110223, end: 20110508
  15. TAKEPRON [Concomitant]
     Route: 048
     Dates: end: 20110508
  16. FLUITRAN [Concomitant]
     Route: 048
     Dates: end: 20110508
  17. MYONAL [Concomitant]
     Route: 048
     Dates: end: 20110508
  18. POTASSIUM [Concomitant]
     Route: 048
     Dates: end: 20110508
  19. MYSLEE [Concomitant]
     Route: 048
     Dates: end: 20110508
  20. PLAVIX [Concomitant]
     Route: 048
     Dates: start: 20110120, end: 20110508

REACTIONS (15)
  - Dilatation ventricular [Unknown]
  - Pulmonary hypertension [Unknown]
  - Cardiac murmur [Unknown]
  - Breath sounds abnormal [Unknown]
  - Oedema peripheral [Unknown]
  - Sinus rhythm [Unknown]
  - Bundle branch block right [Unknown]
  - Electrocardiogram ST segment depression [Unknown]
  - Cardiac failure [Unknown]
  - Coronary artery stenosis [Unknown]
  - Pulmonary artery dilatation [Unknown]
  - Coronary artery disease [Unknown]
  - Pulmonary alveolar haemorrhage [Not Recovered/Not Resolved]
  - Pneumonia [Unknown]
  - Hepatic function abnormal [Not Recovered/Not Resolved]
